FAERS Safety Report 21683055 (Version 3)
Quarter: 2023Q4

REPORT INFORMATION
  Report Type: Spontaneous
  Country: JP (occurrence: JP)
  Receive Date: 20221205
  Receipt Date: 20231219
  Transmission Date: 20240109
  Serious: Yes (Hospitalization, Other)
  Sender: FDA-Public Use
  Company Number: JP-BRISTOL-MYERS SQUIBB COMPANY-2022-134041

PATIENT
  Age: 80 Year
  Sex: Female

DRUGS (2)
  1. YERVOY [Suspect]
     Active Substance: IPILIMUMAB
     Indication: Lung neoplasm malignant
     Route: 041
     Dates: start: 20220527, end: 20220819
  2. OPDIVO [Suspect]
     Active Substance: NIVOLUMAB
     Indication: Lung neoplasm malignant
     Route: 041
     Dates: start: 20220527, end: 20220909

REACTIONS (7)
  - Silent thyroiditis [Recovered/Resolved]
  - Adrenocorticotropic hormone deficiency [Recovered/Resolved]
  - Lung opacity [Unknown]
  - Sepsis [Unknown]
  - Diabetic ketoacidosis [Unknown]
  - Secondary adrenocortical insufficiency [Recovering/Resolving]
  - Pulmonary toxicity [Unknown]

NARRATIVE: CASE EVENT DATE: 20220930
